FAERS Safety Report 4710632-9 (Version None)
Quarter: 2005Q3

REPORT INFORMATION
  Report Type: 
  Country: None (occurrence: None)
  Receive Date: 20050707
  Receipt Date: 20050624
  Transmission Date: 20060218
  Serious: Yes (Hospitalization, Other)
  Sender: FDA-Public Use
  Company Number: 2004015200

PATIENT
  Age: 70 Year
  Sex: Female

DRUGS (11)
  1. LIPITOR [Suspect]
     Indication: HYPERCHOLESTEROLAEMIA
     Dosage: 10 MG (1 IN 1 D) ORAL
     Route: 048
     Dates: start: 20030801
  2. ASPIRIN [Concomitant]
  3. ADALAT [Concomitant]
  4. TENORMIN [Concomitant]
  5. NU LOTAN(LOSARTAN POTASSIUM) [Concomitant]
  6. EPADEL (ETHYL ICOSAPENTATE) [Concomitant]
  7. SELBEX (TEPRENONE) [Concomitant]
  8. TICLOPIDINE HCL [Concomitant]
  9. NITROPEN (GLYCERYL TRINITRATE) [Concomitant]
  10. LENDORM [Concomitant]
  11. RIZE (CLOTIAZEPAM) [Concomitant]

REACTIONS (8)
  - ANGINA UNSTABLE [None]
  - BLOOD PRESSURE INCREASED [None]
  - CONDITION AGGRAVATED [None]
  - CORONARY ARTERY RESTENOSIS [None]
  - MALAISE [None]
  - NASOPHARYNGITIS [None]
  - NAUSEA [None]
  - STENT OCCLUSION [None]
